FAERS Safety Report 6709916-4 (Version None)
Quarter: 2010Q2

REPORT INFORMATION
  Report Type: 
  Country: None (occurrence: None)
  Receive Date: 20100503
  Receipt Date: 20100503
  Transmission Date: 20101027
  Serious: Yes (Other)
  Sender: FDA-Public Use
  Company Number: None

PATIENT
  Age: 12 Month
  Sex: Male
  Weight: 10.4327 kg

DRUGS (2)
  1. CONCENTRATED MOTRIN INFANTS DROPS [Suspect]
     Indication: IMMUNISATION
     Dosage: 1.875ML EVERY 6 HOURS PO
     Route: 048
     Dates: start: 20100419, end: 20100501
  2. CONCENTRATED MOTRIN INFANTS DROPS [Suspect]
     Indication: TEETHING
     Dosage: 1.875ML EVERY 6 HOURS PO
     Route: 048
     Dates: start: 20100419, end: 20100501

REACTIONS (2)
  - BLISTER [None]
  - RASH [None]
